FAERS Safety Report 6259824-0 (Version None)
Quarter: 2009Q3

REPORT INFORMATION
  Report Type: 
  Country: None (occurrence: None)
  Receive Date: 20090706
  Receipt Date: 20090706
  Transmission Date: 20100115
  Serious: Yes (Hospitalization)
  Sender: FDA-Public Use
  Company Number: None

PATIENT
  Age: 60 Year
  Sex: Male

DRUGS (1)
  1. METOCLOPRAMIDE [Suspect]
     Dosage: METOCLOPRAMIDE 10MG THREE TIMED D PO
     Route: 048

REACTIONS (3)
  - COGNITIVE DISORDER [None]
  - CONDITION AGGRAVATED [None]
  - PARKINSONISM [None]
